FAERS Safety Report 19138312 (Version 1)
Quarter: 2021Q2

REPORT INFORMATION
  Report Type: Spontaneous
  Country: RO (occurrence: RO)
  Receive Date: 20210415
  Receipt Date: 20210415
  Transmission Date: 20210717
  Serious: Yes (Disabling)
  Sender: FDA-Public Use
  Company Number: RO-SA-2021SA120241

PATIENT
  Sex: Female
  Weight: 45 kg

DRUGS (2)
  1. AUBAGIO [Suspect]
     Active Substance: TERIFLUNOMIDE
     Indication: MULTIPLE SCLEROSIS
     Dosage: 1 DF
     Route: 048
     Dates: start: 20210101, end: 20210405
  2. SOLIFENACINUM [Concomitant]
     Dosage: UNK
     Dates: start: 2020

REACTIONS (4)
  - Erythema [Recovering/Resolving]
  - Lichenoid keratosis [Unknown]
  - Skin lesion [Recovering/Resolving]
  - Rash [Recovering/Resolving]

NARRATIVE: CASE EVENT DATE: 2021
